FAERS Safety Report 13225951 (Version 1)
Quarter: 2017Q1

REPORT INFORMATION
  Report Type: Spontaneous
  Country: US (occurrence: US)
  Receive Date: 20170210
  Receipt Date: 20170210
  Transmission Date: 20170428
  Serious: Yes (Other)
  Sender: FDA-Public Use
  Company Number: None

PATIENT
  Age: 35 Year
  Sex: Female
  Weight: 55.8 kg

DRUGS (4)
  1. CLARITIN [Concomitant]
     Active Substance: LORATADINE
  2. VITAMIN D [Concomitant]
     Active Substance: CHOLECALCIFEROL
  3. SULFAMETHOXAZOLE/TMP [Suspect]
     Active Substance: SULFAMETHOXAZOLE\TRIMETHOPRIM
     Indication: SINUSITIS
     Dosage: ?          QUANTITY:20 TABLET(S);?
     Route: 048
     Dates: start: 20170202, end: 20170208
  4. PRE-NATAL GUMMY VITAMINS [Concomitant]

REACTIONS (10)
  - Diarrhoea [None]
  - Thirst [None]
  - Gastroenteritis viral [None]
  - Rash generalised [None]
  - Oropharyngeal pain [None]
  - Pyrexia [None]
  - Vomiting [None]
  - Myalgia [None]
  - Hypersensitivity [None]
  - Dry mouth [None]

NARRATIVE: CASE EVENT DATE: 20170207
